FAERS Safety Report 4398785-6 (Version None)
Quarter: 2004Q3

REPORT INFORMATION
  Report Type: 
  Country: None (occurrence: None)
  Receive Date: 20040715
  Receipt Date: 20040706
  Transmission Date: 20050211
  Serious: Yes (Other)
  Sender: FDA-Public Use
  Company Number: PHEH2004US07214

PATIENT
  Age: 73 Year
  Sex: Female

DRUGS (19)
  1. ZELNORM [Suspect]
     Indication: IRRITABLE BOWEL SYNDROME
     Dosage: 6 MG, BID
     Route: 048
     Dates: start: 20040512, end: 20040601
  2. COZAAR [Concomitant]
  3. NORVASC [Concomitant]
  4. IMDUR [Concomitant]
  5. ZETIA [Concomitant]
  6. FOSAMAX [Concomitant]
  7. FOLTX [Concomitant]
  8. POTASSIUM [Concomitant]
  9. THIAZIDES [Concomitant]
  10. SYNTHROID [Concomitant]
  11. ATIVAN [Concomitant]
  12. PREMARIN                                /NEZ/ [Concomitant]
  13. PROTONIX [Concomitant]
  14. PEPCID [Concomitant]
  15. AMBIEN [Concomitant]
  16. CELEBREX [Concomitant]
  17. ASA TABS [Concomitant]
  18. NITRO-BID [Concomitant]
  19. DARVOCET-N 100 [Concomitant]

REACTIONS (5)
  - BLOOD PRESSURE DECREASED [None]
  - DEHYDRATION [None]
  - DIZZINESS [None]
  - HYPOTENSION [None]
  - ULTRASOUND BILIARY TRACT ABNORMAL [None]
